FAERS Safety Report 17857784 (Version 1)
Quarter: 2020Q2

REPORT INFORMATION
  Report Type: Spontaneous
  Country: US (occurrence: US)
  Receive Date: 20200604
  Receipt Date: 20200604
  Transmission Date: 20200714
  Serious: No
  Sender: FDA-Public Use
  Company Number: US-B.I. PHARMACEUTICALS,INC./RIDGEFIELD-2020-US-027368

PATIENT
  Sex: Female

DRUGS (3)
  1. SPIRIVA [Suspect]
     Active Substance: TIOTROPIUM BROMIDE MONOHYDRATE
     Indication: ASTHMA
     Dosage: 18MCG ONE CAPSULE DAILY
     Route: 065
     Dates: start: 20190618
  2. LORATADINE. [Concomitant]
     Active Substance: LORATADINE
     Indication: ASTHMA
     Dosage: 50MG DAILY
     Route: 065
     Dates: start: 2012
  3. MONTELUKAST [Concomitant]
     Active Substance: MONTELUKAST SODIUM
     Indication: ASTHMA
     Dosage: 20MG DAILY
     Route: 065
     Dates: start: 2012

REACTIONS (2)
  - Therapeutic response unexpected [Unknown]
  - Off label use [Unknown]
